FAERS Safety Report 15710647 (Version 1)
Quarter: 2018Q4

REPORT INFORMATION
  Report Type: Spontaneous
  Country: DK (occurrence: DK)
  Receive Date: 20181211
  Receipt Date: 20181211
  Transmission Date: 20190205
  Serious: Yes (Hospitalization)
  Sender: FDA-Public Use
  Company Number: DK-NOVOPROD-636287

PATIENT
  Age: 35 Year
  Sex: Female
  Weight: 87 kg

DRUGS (4)
  1. SAXENDA [Suspect]
     Active Substance: LIRAGLUTIDE
     Indication: OBESITY
     Dosage: STRENGTH: 6 MG PER ML (DK: STYRKE: 6 MG PR ML)
     Route: 058
     Dates: start: 20180204, end: 20180522
  2. DIPROLEN [Concomitant]
     Active Substance: BETAMETHASONE DIPROPIONATE
     Indication: PSORIASIS
     Dosage: STRENGTH: 0.5 MG/G (DK: STYRKE: 0,5MG/G)
     Route: 003
     Dates: start: 20170227
  3. NIZORAL [Concomitant]
     Active Substance: KETOCONAZOLE
     Indication: PSORIASIS
     Dosage: STRENGTH: 2%. DOSAGE: CLEAN TWICE A DAY (DK: STYRKE: 2%. DOSIS: VASK 2 GANGE DAGLIG)
     Route: 003
     Dates: start: 20170124
  4. DAIVOBET [Concomitant]
     Active Substance: BETAMETHASONE DIPROPIONATE\CALCIPOTRIENE
     Indication: PSORIASIS
     Dosage: STRENGTH: 50 MICROGRAM/G+0.5MG/G (DK: STYRKE: 50 MIKROGRAM/G+0,5MG/G)
     Route: 003
     Dates: start: 20180109

REACTIONS (4)
  - Pancreatitis [Recovered/Resolved]
  - Cholelithotomy [Recovered/Resolved]
  - Cholelithiasis [Recovered/Resolved]
  - Injection site erythema [Recovered/Resolved]

NARRATIVE: CASE EVENT DATE: 20180312
